FAERS Safety Report 8936675 (Version 2)
Quarter: 2013Q1

REPORT INFORMATION
  Report Type: Spontaneous
  Country: JP (occurrence: JP)
  Receive Date: 20121130
  Receipt Date: 20130131
  Transmission Date: 20140127
  Serious: Yes (Death, Other)
  Sender: FDA-Public Use
  Company Number: JP-B.I. PHARMACEUTICALS,INC./RIDGEFIELD-2012-BI-01338NB

PATIENT
  Age: 67 Year
  Sex: Male
  Weight: 46.6 kg

DRUGS (3)
  1. PRADAXA [Suspect]
     Indication: EMBOLIC STROKE
     Dosage: 220 MG
     Route: 048
     Dates: start: 20120921, end: 20121105
  2. EPADEL S [Suspect]
     Indication: HYPERLIPIDAEMIA
     Dosage: 1800 MG
     Route: 048
     Dates: start: 20120921, end: 20121105
  3. FEBURIC [Concomitant]
     Indication: GOUT
     Dosage: 10 MG
     Route: 048

REACTIONS (2)
  - Road traffic accident [Fatal]
  - Interstitial lung disease [Unknown]
